FAERS Safety Report 10086819 (Version 2)
Quarter: 2014Q2

REPORT INFORMATION
  Report Type: Spontaneous
  Country: US (occurrence: US)
  Receive Date: 20140418
  Receipt Date: 20140513
  Transmission Date: 20141212
  Serious: Yes (Hospitalization)
  Sender: FDA-Public Use
  Company Number: US-GLAXOSMITHKLINE-A1069846A

PATIENT
  Age: 47 Year
  Sex: Male

DRUGS (10)
  1. LAMICTAL [Suspect]
     Indication: CONVULSION
     Dosage: 500MG THREE TIMES PER DAY
     Route: 048
  2. VALIUM [Concomitant]
  3. EZETIMIBE [Concomitant]
  4. ROSUVASTATIN CALCIUM [Concomitant]
  5. ATENOLOL [Concomitant]
  6. ASPIRIN [Concomitant]
  7. CLARITIN D [Concomitant]
  8. VERAPAMIL [Concomitant]
  9. BUTAL/ASA/CAF [Concomitant]
  10. EXPECTORANT [Concomitant]

REACTIONS (9)
  - Investigation [Unknown]
  - Convulsion [Not Recovered/Not Resolved]
  - Fatigue [Not Recovered/Not Resolved]
  - Somnolence [Not Recovered/Not Resolved]
  - Headache [Not Recovered/Not Resolved]
  - Nausea [Not Recovered/Not Resolved]
  - Regurgitation [Not Recovered/Not Resolved]
  - Nausea [Not Recovered/Not Resolved]
  - Malaise [Not Recovered/Not Resolved]
